FAERS Safety Report 8134442-8 (Version None)
Quarter: 2012Q1

REPORT INFORMATION
  Report Type: 
  Country: None (occurrence: None)
  Receive Date: 20120214
  Receipt Date: 20120214
  Transmission Date: 20120608
  Serious: No
  Sender: FDA-Public Use
  Company Number: None

PATIENT
  Sex: Female
  Weight: 68.038 kg

DRUGS (1)
  1. LEVAQUIN [Suspect]
     Indication: INFECTION
     Route: 048
     Dates: start: 20110722, end: 20110729

REACTIONS (9)
  - MYALGIA [None]
  - GLOSSODYNIA [None]
  - HYPOAESTHESIA [None]
  - DYSGEUSIA [None]
  - FATIGUE [None]
  - ARTHRALGIA [None]
  - HYPOAESTHESIA ORAL [None]
  - NEUROPATHY PERIPHERAL [None]
  - MUSCLE SPASMS [None]
